FAERS Safety Report 21182957 (Version 1)
Quarter: 2022Q3

REPORT INFORMATION
  Report Type: Spontaneous
  Country: IN (occurrence: IN)
  Receive Date: 20220808
  Receipt Date: 20220808
  Transmission Date: 20221027
  Serious: Yes (Other)
  Sender: FDA-Public Use
  Company Number: IN-NOVARTISPH-NVSC2022IN160431

PATIENT
  Age: 85 Year
  Sex: Female
  Weight: 70 kg

DRUGS (2)
  1. BROLUCIZUMAB [Suspect]
     Active Substance: BROLUCIZUMAB
     Indication: Polypoidal choroidal vasculopathy
     Dosage: 6 MG, (1ST INJECTION)
     Route: 031
     Dates: start: 20220328
  2. BROLUCIZUMAB [Suspect]
     Active Substance: BROLUCIZUMAB
     Indication: Neovascular age-related macular degeneration
     Dosage: UNK (2ND INJECTION)
     Route: 065
     Dates: start: 20220606

REACTIONS (9)
  - Eye inflammation [Recovered/Resolved with Sequelae]
  - Ocular hyperaemia [Unknown]
  - Blindness [Unknown]
  - Eye pain [Unknown]
  - Optic atrophy [Unknown]
  - Retinal vasculitis [Unknown]
  - Vitritis [Recovered/Resolved with Sequelae]
  - Hypopyon [Unknown]
  - Keratic precipitates [Recovered/Resolved with Sequelae]

NARRATIVE: CASE EVENT DATE: 20220630
